FAERS Safety Report 8096994-6 (Version None)
Quarter: 2012Q1

REPORT INFORMATION
  Report Type: 
  Country: None (occurrence: None)
  Receive Date: 20120129
  Receipt Date: 20111219
  Transmission Date: 20120608
  Serious: No
  Sender: FDA-Public Use
  Company Number: US-ABBOTT-11P-163-0880771-00

PATIENT
  Age: 44 Year
  Sex: Female

DRUGS (2)
  1. ALBUTEROL [Concomitant]
     Indication: PRODUCT USED FOR UNKNOWN INDICATION
  2. HUMIRA [Suspect]
     Indication: PSORIASIS
     Dates: start: 20111110

REACTIONS (8)
  - INJECTION SITE NODULE [None]
  - INJECTION SITE SWELLING [None]
  - NAUSEA [None]
  - INJECTION SITE PAIN [None]
  - VOMITING [None]
  - INJECTION SITE ERYTHEMA [None]
  - INJECTION SITE PRURITUS [None]
  - DIZZINESS [None]
